FAERS Safety Report 5679611-1 (Version None)
Quarter: 2008Q1

REPORT INFORMATION
  Report Type: 
  Country: None (occurrence: None)
  Receive Date: 20080321
  Receipt Date: 20080305
  Transmission Date: 20080703
  Serious: Yes (Hospitalization, Other)
  Sender: FDA-Public Use
  Company Number: 2007EU002049

PATIENT
  Age: 54 Year
  Sex: Female

DRUGS (6)
  1. TACROLIMUS [Suspect]
  2. METFORMIN HCL [Suspect]
     Indication: DIABETES MELLITUS
  3. INSULIN [Suspect]
     Indication: DIABETES MELLITUS
  4. REPAGLINIDE [Suspect]
     Indication: DIABETES MELLITUS
  5. RAMIPRIL [Suspect]
     Indication: HYPERTENSION
  6. IRBESARTAN [Suspect]
     Indication: HYPERTENSION

REACTIONS (1)
  - ANAEMIA HAEMOLYTIC AUTOIMMUNE [None]
